FAERS Safety Report 14109171 (Version 2)
Quarter: 2021Q1

REPORT INFORMATION
  Report Type: Other
  Country: US (occurrence: US)
  Receive Date: 20171019
  Receipt Date: 20210212
  Transmission Date: 20210419
  Serious: Yes (Life-Threatening, Hospitalization, Other)
  Sender: FDA-Public Use
  Company Number: US-AIR PRODUCTS AND CHEMICALS, INC. -2030782

PATIENT
  Age: 61 Year
  Sex: Female

DRUGS (1)
  1. OXYGEN. [Suspect]
     Active Substance: OXYGEN
     Route: 045

REACTIONS (3)
  - Tachypnoea [None]
  - Tachycardia [None]
  - Pneumoperitoneum [None]
